FAERS Safety Report 10221167 (Version 1)
Quarter: 2014Q2

REPORT INFORMATION
  Report Type: Spontaneous
  Country: US (occurrence: None)
  Receive Date: 20140605
  Receipt Date: 20140605
  Transmission Date: 20141212
  Serious: Yes (Other)
  Sender: FDA-Public Use
  Company Number: None

PATIENT
  Age: 58 Year
  Sex: Female
  Weight: 117.03 kg

DRUGS (1)
  1. SYNTHROID 125 MG [Suspect]
     Indication: HYPOTHYROIDISM
     Route: 048
     Dates: start: 200603

REACTIONS (1)
  - Blood thyroid stimulating hormone abnormal [None]
